FAERS Safety Report 18019190 (Version 1)
Quarter: 2020Q3

REPORT INFORMATION
  Report Type: Spontaneous
  Country: FI (occurrence: FI)
  Receive Date: 20200714
  Receipt Date: 20200714
  Transmission Date: 20201103
  Serious: Yes (Death, Life-Threatening, Hospitalization, Other)
  Sender: FDA-Public Use
  Company Number: FI-AUROBINDO-AUR-APL-2020-033919

PATIENT
  Age: 75 Year
  Sex: Female
  Weight: 63 kg

DRUGS (27)
  1. OPSUMIT [Suspect]
     Active Substance: MACITENTAN
     Indication: PULMONARY ARTERIAL HYPERTENSION
     Dosage: 10 MILLIGRAM, ONCE A DAY
     Route: 048
     Dates: start: 20160519
  2. CARDACE [Concomitant]
     Indication: CORONARY ARTERY DISEASE
     Dosage: UNK
     Route: 048
     Dates: start: 20160406
  3. CEFUROXIME. [Concomitant]
     Active Substance: CEFUROXIME
     Indication: INFECTION
     Dosage: UNK
     Route: 065
  4. ATROVENT [Concomitant]
     Active Substance: IPRATROPIUM BROMIDE
     Indication: INTERSTITIAL LUNG DISEASE
     Dosage: UNK
     Route: 055
     Dates: start: 20160330
  5. PREDNISOLON [Concomitant]
     Active Substance: PREDNISOLONE
     Indication: PULMONARY FIBROSIS
     Dosage: UNK
     Route: 065
  6. SILDENAFIL. [Concomitant]
     Active Substance: SILDENAFIL
     Indication: PULMONARY ARTERIAL HYPERTENSION
     Dosage: 120 MILLIGRAM, ONCE A DAY
     Route: 048
     Dates: start: 20160204
  7. SPIRONOLACTONE. [Concomitant]
     Active Substance: SPIRONOLACTONE
     Indication: PULMONARY ARTERIAL HYPERTENSION
     Dosage: UNK
     Route: 048
     Dates: start: 20180813
  8. CALCIUM CARBONATE. [Concomitant]
     Active Substance: CALCIUM CARBONATE
     Indication: PROPHYLAXIS
     Dosage: UNK
     Route: 048
     Dates: start: 20160509
  9. CEFUROXIME. [Concomitant]
     Active Substance: CEFUROXIME
     Indication: PNEUMONIA
     Dosage: UNK
     Route: 048
     Dates: start: 20180809
  10. FUROSEMIDE. [Concomitant]
     Active Substance: FUROSEMIDE
     Indication: PULMONARY ARTERIAL HYPERTENSION
     Dosage: UNK
     Route: 048
     Dates: start: 20180813
  11. PRIMASPAN [Concomitant]
     Active Substance: ASPIRIN
     Indication: CORONARY ARTERY DISEASE
     Dosage: UNK
     Route: 048
     Dates: start: 20150906
  12. UPTRAVI [Interacting]
     Active Substance: SELEXIPAG
     Indication: PRODUCT USED FOR UNKNOWN INDICATION
     Dosage: 400 MICROGRAM, ONCE A DAY
     Route: 048
     Dates: start: 20181022
  13. AZAMUN [Concomitant]
     Active Substance: AZATHIOPRINE
     Indication: PULMONARY FIBROSIS
     Dosage: UNK
     Route: 048
     Dates: start: 20180906
  14. UPTRAVI [Interacting]
     Active Substance: SELEXIPAG
     Dosage: 800 MILLIGRAM, ONCE A DAY
     Route: 048
     Dates: start: 20181029, end: 20181105
  15. GAVISCON [Concomitant]
     Active Substance: ALUMINUM HYDROXIDE\MAGNESIUM CARBONATE
     Indication: DYSPEPSIA
     Dosage: UNK
     Route: 048
     Dates: start: 20180328
  16. NITRO [Concomitant]
     Active Substance: NITROGLYCERIN
     Indication: CORONARY ARTERY DISEASE
     Dosage: UNK
     Route: 065
     Dates: start: 20120823
  17. CLOPIDOGREL [Suspect]
     Active Substance: CLOPIDOGREL BISULFATE
     Indication: MYOCARDIAL ISCHAEMIA
     Dosage: UNK
     Route: 048
     Dates: start: 20181110, end: 20181111
  18. ATROVENT [Concomitant]
     Active Substance: IPRATROPIUM BROMIDE
     Indication: PULMONARY FIBROSIS
     Dosage: UNK
     Route: 065
  19. EMCONCOR [Concomitant]
     Active Substance: BISOPROLOL FUMARATE
     Indication: CORONARY ARTERY DISEASE
     Dosage: UNK
     Route: 048
     Dates: start: 20180813
  20. UPTRAVI [Interacting]
     Active Substance: SELEXIPAG
     Dosage: 1200 MICROGRAM, ONCE A DAY
     Route: 048
     Dates: start: 20181105, end: 20181112
  21. ARTELAC [Concomitant]
     Indication: DRY EYE
     Dosage: UNK
     Route: 065
     Dates: start: 20180101
  22. ATORVASTATIN [Concomitant]
     Active Substance: ATORVASTATIN
     Indication: DYSLIPIDAEMIA
     Dosage: UNK
     Route: 048
     Dates: start: 20160615
  23. KLEXANE [Concomitant]
     Active Substance: ENOXAPARIN
     Indication: ACUTE CORONARY SYNDROME
     Dosage: UNK
     Route: 058
     Dates: start: 20181110
  24. PREDNISOLON [Concomitant]
     Active Substance: PREDNISOLONE
     Indication: INTERSTITIAL LUNG DISEASE
     Dosage: UNK
     Route: 048
     Dates: start: 20180417
  25. PROLIA [Concomitant]
     Active Substance: DENOSUMAB
     Indication: PULMONARY FIBROSIS
     Dosage: UNK
     Route: 058
     Dates: start: 20180809
  26. COHEMIN [Concomitant]
     Indication: VITAMIN B12 DEFICIENCY
     Dosage: UNK
     Route: 030
     Dates: start: 20121006
  27. PANTOPRAZOLE [Concomitant]
     Active Substance: PANTOPRAZOLE
     Indication: PROPHYLAXIS
     Dosage: UNK
     Route: 048
     Dates: start: 20180328

REACTIONS (20)
  - Nausea [Recovered/Resolved]
  - Dyspnoea [Not Recovered/Not Resolved]
  - Pyrexia [Not Recovered/Not Resolved]
  - Chest pain [Recovered/Resolved]
  - Gastrointestinal haemorrhage [Recovered/Resolved]
  - Pneumonia [Not Recovered/Not Resolved]
  - Electrocardiogram change [Recovered/Resolved]
  - Troponin T increased [Recovered/Resolved]
  - Stent placement [Unknown]
  - Osteoarthritis [Unknown]
  - Transfusion [Unknown]
  - Cardiac arrest [Fatal]
  - Anaemia [Unknown]
  - Haematochezia [Recovered/Resolved]
  - N-terminal prohormone brain natriuretic peptide increased [Recovered/Resolved]
  - Angina pectoris [Recovered/Resolved]
  - Cough [Not Recovered/Not Resolved]
  - Myocardial ischaemia [Recovered/Resolved]
  - Percutaneous coronary intervention [Unknown]
  - Drug interaction [Unknown]

NARRATIVE: CASE EVENT DATE: 20181110
